FAERS Safety Report 4408221-9 (Version None)
Quarter: 2004Q3

REPORT INFORMATION
  Report Type: 
  Country: None (occurrence: None)
  Receive Date: 20040722
  Receipt Date: 20040710
  Transmission Date: 20050211
  Serious: Yes (Other)
  Sender: FDA-Public Use
  Company Number: 2004223325IN

PATIENT
  Age: 58 Year
  Sex: Male
  Weight: 93 kg

DRUGS (1)
  1. MEDROL [Suspect]
     Indication: IMMUNOSUPPRESSION
     Dosage: 8 MG, QD, ORAL
     Route: 048

REACTIONS (2)
  - BLOOD CREATININE INCREASED [None]
  - TRANSPLANT REJECTION [None]
